FAERS Safety Report 6009937-3 (Version None)
Quarter: 2008Q4

REPORT INFORMATION
  Report Type: 
  Country: None (occurrence: None)
  Receive Date: 20081216
  Receipt Date: 20081210
  Transmission Date: 20090506
  Serious: Yes (Hospitalization)
  Sender: FDA-Public Use
  Company Number: WAES 0812ESP00004

PATIENT
  Age: 72 Year
  Sex: Male

DRUGS (5)
  1. PRIMAXIN [Suspect]
     Indication: ABDOMINAL SEPSIS
     Dosage: 1000MG/1000 MG/Q6H IV
     Route: 042
     Dates: start: 20050523, end: 20050613
  2. ACENOCOUMAROL [Concomitant]
  3. AMIKACIN [Concomitant]
  4. AMIODARONE HCL [Concomitant]
  5. AMOXICILLIN/CLAVULANATE POTSSIUM [Concomitant]

REACTIONS (10)
  - ACINETOBACTER INFECTION [None]
  - ACUTE RESPIRATORY DISTRESS SYNDROME [None]
  - ACUTE RESPIRATORY FAILURE [None]
  - LEUKOCYTOSIS [None]
  - PLEURAL EFFUSION [None]
  - PNEUMONIA [None]
  - PSEUDOMONAS INFECTION [None]
  - SEPTIC SHOCK [None]
  - STAPHYLOCOCCAL INFECTION [None]
  - SYSTEMIC CANDIDA [None]
